FAERS Safety Report 4496243-1 (Version None)
Quarter: 2004Q4

REPORT INFORMATION
  Report Type: 
  Country: None (occurrence: None)
  Receive Date: 20041109
  Receipt Date: 20041029
  Transmission Date: 20050328
  Serious: Yes (Other)
  Sender: FDA-Public Use
  Company Number: CA-JNJFOC-20041100645

PATIENT
  Sex: Female

DRUGS (1)
  1. REMICADE [Suspect]
     Indication: CROHN'S DISEASE
     Route: 042

REACTIONS (2)
  - MULTIPLE SCLEROSIS [None]
  - NERVOUS SYSTEM DISORDER [None]
